APPROVED DRUG PRODUCT: XELSTRYM
Active Ingredient: DEXTROAMPHETAMINE
Strength: 18MG/9HR
Dosage Form/Route: SYSTEM;TRANSDERMAL
Application: N215401 | Product #004
Applicant: NOVEN PHARMACEUTICALS INC
Approved: Mar 22, 2022 | RLD: Yes | RS: Yes | Type: RX

PATENTS:
Patent 9456993 | Expires: Oct 24, 2033
Patent 11559501 | Expires: Jan 6, 2042
Patent 9474722 | Expires: Oct 24, 2033